FAERS Safety Report 7365816-0 (Version None)
Quarter: 2011Q1

REPORT INFORMATION
  Report Type: 
  Country: None (occurrence: None)
  Receive Date: 20110322
  Receipt Date: 20110308
  Transmission Date: 20110831
  Serious: Yes (Other)
  Sender: FDA-Public Use
  Company Number: DE-JNJFOC-20110307253

PATIENT
  Age: 80 Year
  Sex: Female

DRUGS (3)
  1. TARGIN [Concomitant]
     Route: 065
  2. PALEXIA RETARD [Suspect]
     Indication: PAIN
     Dosage: 150 MG, 2/DAY
     Route: 048
  3. TARGIN [Concomitant]
     Indication: PAIN
     Route: 065

REACTIONS (1)
  - URINARY RETENTION [None]
